FAERS Safety Report 10671387 (Version 1)
Quarter: 2014Q4

REPORT INFORMATION
  Report Type: Report from Study
  Country: FR (occurrence: FR)
  Receive Date: 20141223
  Receipt Date: 20141223
  Transmission Date: 20150529
  Serious: Yes (Life-Threatening)
  Sender: FDA-Public Use
  Company Number: FR-SA-2014SA175755

PATIENT
  Age: 7 Year
  Sex: Male

DRUGS (3)
  1. CAMPATH [Suspect]
     Active Substance: ALEMTUZUMAB
     Indication: LYMPHOHISTIOCYTOSIS
     Dosage: 30 MG FIVE TIMES PER WEEK
     Route: 065
     Dates: start: 201412, end: 20141204
  2. THYMOGLOBULINE [Concomitant]
     Active Substance: LAPINE T-LYMPHOCYTE IMMUNE GLOBULIN
     Indication: LYMPHOHISTIOCYTOSIS
     Dates: start: 20141124, end: 20141125
  3. CAMPATH [Suspect]
     Active Substance: ALEMTUZUMAB
     Indication: LYMPHOHISTIOCYTOSIS
     Route: 065
     Dates: start: 20141125, end: 20141126

REACTIONS (1)
  - Intracranial pressure increased [Recovered/Resolved]

NARRATIVE: CASE EVENT DATE: 20141125
